FAERS Safety Report 26118796 (Version 2)
Quarter: 2025Q4

REPORT INFORMATION
  Report Type: Spontaneous
  Country: US (occurrence: US)
  Receive Date: 20251203
  Receipt Date: 20251224
  Transmission Date: 20260118
  Serious: Yes (Other)
  Sender: TEVA
  Company Number: US-TEVA-VS-3399034

PATIENT

DRUGS (2)
  1. PROPYLTHIOURACIL [Suspect]
     Active Substance: PROPYLTHIOURACIL
     Indication: Graves^ disease
     Route: 064
  2. PROPYLTHIOURACIL [Suspect]
     Active Substance: PROPYLTHIOURACIL
     Indication: Graves^ disease
     Route: 064

REACTIONS (6)
  - Goitre [Recovered/Resolved]
  - Polyhydramnios [Recovered/Resolved]
  - Tracheal compression [Recovered/Resolved]
  - Foetal disorder [Recovered/Resolved]
  - Dysphagia [Recovered/Resolved]
  - Foetal exposure during pregnancy [Unknown]
